FAERS Safety Report 9115136 (Version 2)
Quarter: 2013Q2

REPORT INFORMATION
  Report Type: Report from Study
  Country: US (occurrence: US)
  Receive Date: 20130225
  Receipt Date: 20130625
  Transmission Date: 20140414
  Serious: Yes (Life-Threatening, Hospitalization)
  Sender: FDA-Public Use
  Company Number: US-JNJFOC-20130211752

PATIENT
  Age: 58 Year
  Sex: Male
  Weight: 62.5 kg

DRUGS (2)
  1. APAP [Suspect]
     Route: 065
  2. APAP [Suspect]
     Indication: PRODUCT USED FOR UNKNOWN INDICATION
     Route: 065

REACTIONS (6)
  - Intentional overdose [Recovered/Resolved]
  - Suicide attempt [Recovered/Resolved]
  - Hypotension [Recovered/Resolved]
  - Hepatic failure [Recovered/Resolved]
  - Renal failure acute [Recovered/Resolved]
  - Chest pain [Recovered/Resolved]
